FAERS Safety Report 5605976-2 (Version None)
Quarter: 2008Q1

REPORT INFORMATION
  Report Type: 
  Country: None (occurrence: None)
  Receive Date: 20080123
  Receipt Date: 20080123
  Transmission Date: 20080703
  Serious: Yes (Disabling)
  Sender: FDA-Public Use
  Company Number: None

PATIENT
  Age: 72 Year
  Sex: Male
  Weight: 97.5234 kg

DRUGS (1)
  1. LIPITOR [Suspect]
     Indication: TRANSIENT ISCHAEMIC ATTACK
     Dosage: 20MG EVERY OTHER DAY PO
     Route: 048
     Dates: start: 20030501, end: 20080116

REACTIONS (2)
  - PAIN IN EXTREMITY [None]
  - SENSORY DISTURBANCE [None]
